FAERS Safety Report 13199038 (Version 2)
Quarter: 2017Q1

REPORT INFORMATION
  Report Type: Spontaneous
  Country: IN (occurrence: IN)
  Receive Date: 20170208
  Receipt Date: 20170214
  Transmission Date: 20170428
  Serious: Yes (Other)
  Sender: FDA-Public Use
  Company Number: PHHY2017IN017517

PATIENT
  Age: 29 Year
  Sex: Male
  Weight: 58 kg

DRUGS (7)
  1. CARDIVAS [Concomitant]
     Indication: ANGINA PECTORIS
     Dosage: 6.2 MG, UNK
     Route: 048
     Dates: start: 20161216
  2. CORDARONE [Concomitant]
     Active Substance: AMIODARONE HYDROCHLORIDE
     Indication: ARRHYTHMIA
     Dosage: 200 MG, UNK
     Route: 048
     Dates: start: 20161216
  3. LASILACTONE [Concomitant]
     Active Substance: FUROSEMIDE\SPIRONOLACTONE
     Indication: PRODUCT USED FOR UNKNOWN INDICATION
     Dosage: 50 MG, QD
     Route: 048
     Dates: start: 20161216
  4. VYMADA [Suspect]
     Active Substance: SACUBITRIL\VALSARTAN
     Indication: EJECTION FRACTION DECREASED
     Dosage: 75 MG, BID
     Route: 048
     Dates: start: 20161216
  5. IVABRADINE [Suspect]
     Active Substance: IVABRADINE
     Indication: PRODUCT USED FOR UNKNOWN INDICATION
     Route: 065
  6. CEFIXIME. [Concomitant]
     Active Substance: CEFIXIME
     Indication: PRODUCT USED FOR UNKNOWN INDICATION
     Dosage: 200 MG, UNK
     Route: 048
     Dates: start: 20161216, end: 20161221
  7. ISOLAZINE [Concomitant]
     Indication: ANGINA PECTORIS
     Dosage: UNK
     Route: 065
     Dates: start: 20161216

REACTIONS (5)
  - Drug prescribing error [Unknown]
  - Haematochezia [Recovering/Resolving]
  - Weight increased [Recovering/Resolving]
  - Wrong technique in product usage process [Unknown]
  - Chills [Recovering/Resolving]

NARRATIVE: CASE EVENT DATE: 20170130
